FAERS Safety Report 24200038 (Version 1)
Quarter: 2024Q3

REPORT INFORMATION
  Report Type: Spontaneous
  Country: DE (occurrence: DE)
  Receive Date: 20240812
  Receipt Date: 20240812
  Transmission Date: 20241016
  Serious: Yes (Other)
  Sender: GILEAD
  Company Number: DE-GILEAD-2024-0682938

PATIENT
  Age: 38 Year
  Sex: Female

DRUGS (2)
  1. VIREAD [Suspect]
     Active Substance: TENOFOVIR DISOPROXIL FUMARATE
     Indication: Hepatitis B
     Dosage: UNK
     Route: 065
     Dates: start: 2021
  2. HEPCLUDEX [BULEVIRTIDE ACETATE] [Concomitant]

REACTIONS (4)
  - Hepatitis D [Unknown]
  - Portal hypertension [Unknown]
  - Obesity [Unknown]
  - Fibrosis [Unknown]
